FAERS Safety Report 26107534 (Version 5)
Quarter: 2025Q4

REPORT INFORMATION
  Report Type: Report from Study
  Country: US (occurrence: US)
  Receive Date: 20251201
  Receipt Date: 20251230
  Transmission Date: 20260117
  Serious: Yes (Hospitalization, Other)
  Sender: PFIZER
  Company Number: US-PFIZER INC-202500233164

PATIENT
  Age: 51 Year
  Sex: Male

DRUGS (3)
  1. HYMPAVZI [Suspect]
     Active Substance: MARSTACIMAB-HNCQ
     Indication: Factor IX deficiency
     Dosage: EVERY THURSDAY, ONE INJECTION OF 150 MG
     Dates: start: 20250313, end: 20251201
  2. HYMPAVZI [Suspect]
     Active Substance: MARSTACIMAB-HNCQ
     Indication: Factor VIII deficiency
     Dosage: 300MG LOADING DOSE AND 150MG WEEKLY
     Dates: start: 202509, end: 202511
  3. REBINYN [Concomitant]
     Active Substance: COAGULATION FACTOR IX RECOMBINANT HUMAN
     Dosage: UNK
     Dates: start: 20240528

REACTIONS (13)
  - Transient ischaemic attack [Recovered/Resolved]
  - Epistaxis [Not Recovered/Not Resolved]
  - Arthralgia [Recovering/Resolving]
  - Blindness unilateral [Recovering/Resolving]
  - Tunnel vision [Recovering/Resolving]
  - Tremor [Not Recovered/Not Resolved]
  - Disturbance in attention [Not Recovered/Not Resolved]
  - Speech disorder [Recovered/Resolved]
  - Brain fog [Not Recovered/Not Resolved]
  - Limb injury [Not Recovered/Not Resolved]
  - Wound infection [Not Recovered/Not Resolved]
  - Nasopharyngitis [Not Recovered/Not Resolved]
  - Anaemia [Not Recovered/Not Resolved]

NARRATIVE: CASE EVENT DATE: 20250101
